FAERS Safety Report 13946510 (Version 1)
Quarter: 2017Q3

REPORT INFORMATION
  Report Type: Spontaneous
  Country: JP (occurrence: JP)
  Receive Date: 20170907
  Receipt Date: 20170907
  Transmission Date: 20171128
  Serious: Yes (Death, Other)
  Sender: FDA-Public Use
  Company Number: JP-009507513-1709JPN000139J

PATIENT
  Age: 68 Year
  Sex: Female
  Weight: 37 kg

DRUGS (1)
  1. KEYTRUDA [Suspect]
     Active Substance: PEMBROLIZUMAB
     Indication: SQUAMOUS CELL CARCINOMA OF LUNG
     Dosage: 200 MG, Q3W
     Route: 041
     Dates: start: 20170616, end: 20170703

REACTIONS (1)
  - Death [Fatal]

NARRATIVE: CASE EVENT DATE: 20170703
